FAERS Safety Report 4704591-2 (Version None)
Quarter: 2005Q2

REPORT INFORMATION
  Report Type: 
  Country: None (occurrence: None)
  Receive Date: 20050629
  Receipt Date: 20050619
  Transmission Date: 20051028
  Serious: Yes (Death)
  Sender: FDA-Public Use
  Company Number: 2005P1000042

PATIENT
  Age: 26 Year
  Sex: Female

DRUGS (4)
  1. BUSULFAN (BUSULFAN) [Suspect]
     Indication: LYMPHOMA
     Dosage: 176 MG; QD;IV
     Route: 042
     Dates: start: 20030811, end: 20030814
  2. CYCLOPHOSPHAMIDE [Concomitant]
  3. ETOPOSIDE [Concomitant]
  4. PHENYTOIN [Concomitant]

REACTIONS (3)
  - BONE MARROW TRANSPLANT [None]
  - MULTI-ORGAN FAILURE [None]
  - SEPSIS [None]
